FAERS Safety Report 13257568 (Version 2)
Quarter: 2017Q1

REPORT INFORMATION
  Report Type: Spontaneous
  Country: FR (occurrence: FR)
  Receive Date: 20170221
  Receipt Date: 20170313
  Transmission Date: 20170428
  Serious: Yes (Hospitalization)
  Sender: FDA-Public Use
  Company Number: FR-JNJFOC-20170214470

PATIENT
  Age: 10 Year
  Sex: Male

DRUGS (3)
  1. REMICADE [Suspect]
     Active Substance: INFLIXIMAB
     Indication: ENTEROCOLITIS HAEMORRHAGIC
     Dosage: 5MG/KG
     Route: 042
     Dates: start: 20140910
  2. REMICADE [Suspect]
     Active Substance: INFLIXIMAB
     Indication: ENTEROCOLITIS HAEMORRHAGIC
     Dosage: 10MG/KG
     Route: 042
     Dates: start: 20141021, end: 20141021
  3. REMICADE [Suspect]
     Active Substance: INFLIXIMAB
     Indication: ENTEROCOLITIS HAEMORRHAGIC
     Dosage: 5MG/KG
     Route: 042
     Dates: start: 20131214

REACTIONS (4)
  - Abdominal pain [Unknown]
  - Drug ineffective [Recovered/Resolved]
  - Drug specific antibody present [Recovered/Resolved]
  - Diarrhoea haemorrhagic [Recovering/Resolving]

NARRATIVE: CASE EVENT DATE: 201410
